FAERS Safety Report 6218914-9 (Version None)
Quarter: 2009Q2

REPORT INFORMATION
  Report Type: 
  Country: None (occurrence: None)
  Receive Date: 20090608
  Receipt Date: 20090526
  Transmission Date: 20091009
  Serious: Yes (Hospitalization)
  Sender: FDA-Public Use
  Company Number: US-MYLANLABS-2009S1009254

PATIENT
  Age: 77 Year
  Sex: Male

DRUGS (1)
  1. WARFARIN [Suspect]
     Indication: AORTIC VALVE REPLACEMENT
     Dosage: DOSAGE NOT STATED

REACTIONS (5)
  - ACTIVATED PARTIAL THROMBOPLASTIN TIME PROLONGED [None]
  - COMPARTMENT SYNDROME [None]
  - INTERNATIONAL NORMALISED RATIO INCREASED [None]
  - PROTHROMBIN TIME PROLONGED [None]
  - TENDON RUPTURE [None]
